FAERS Safety Report 5017517-1 (Version None)
Quarter: 2006Q2

REPORT INFORMATION
  Report Type: 
  Country: None (occurrence: None)
  Receive Date: 20060601
  Receipt Date: 20060601
  Transmission Date: 20061013
  Serious: Yes (Other)
  Sender: FDA-Public Use
  Company Number: None

PATIENT
  Age: 43 Year
  Sex: Male
  Weight: 80 kg

DRUGS (1)
  1. GAMMAGARD LIQUID [Suspect]
     Indication: POLYMYOSITIS
     Dosage: 80 GRAMS   IV Q MONTH   IV
     Route: 042
     Dates: start: 20060526

REACTIONS (4)
  - HEADACHE [None]
  - MENINGITIS ASEPTIC [None]
  - MUSCULAR WEAKNESS [None]
  - NAUSEA [None]
